FAERS Safety Report 17828123 (Version 4)
Quarter: 2020Q2

REPORT INFORMATION
  Report Type: Spontaneous
  Country: BE (occurrence: BE)
  Receive Date: 20200527
  Receipt Date: 20200616
  Transmission Date: 20200714
  Serious: Yes (Other)
  Sender: FDA-Public Use
  Company Number: NVSC2020BE141727

PATIENT
  Age: 17 Year
  Sex: Male

DRUGS (11)
  1. 6-MERCAPTOPURINE MONOHYDRATE [Concomitant]
     Active Substance: MERCAPTOPURINE
     Indication: T-CELL LYMPHOMA
  2. HEPARIN [Concomitant]
     Active Substance: HEPARIN SODIUM
     Indication: SUPERIOR SAGITTAL SINUS THROMBOSIS
     Dosage: UNK, LOW-MOLECULAR-WEIGHT
     Route: 065
  3. VORICONAZOLE. [Suspect]
     Active Substance: VORICONAZOLE
     Indication: ANTIFUNGAL PROPHYLAXIS
     Dosage: UNK
     Route: 065
  4. METHOTREXATE. [Interacting]
     Active Substance: METHOTREXATE
     Indication: PRECURSOR T-LYMPHOBLASTIC LYMPHOMA/LEUKAEMIA
     Dosage: 3 COURSES OF 5000 MG/M2 (HIGH DOSE)
     Route: 042
  5. CYTARABINE. [Concomitant]
     Active Substance: CYTARABINE
     Indication: T-CELL LYMPHOMA
  6. RANITIDINE. [Concomitant]
     Active Substance: RANITIDINE
     Indication: ABDOMINAL PAIN UPPER
     Dosage: UNK
     Route: 065
  7. VORICONAZOLE. [Interacting]
     Active Substance: VORICONAZOLE
     Indication: BRONCHOPULMONARY ASPERGILLOSIS
  8. CYTARABINE. [Concomitant]
     Active Substance: CYTARABINE
     Indication: PRECURSOR T-LYMPHOBLASTIC LYMPHOMA/LEUKAEMIA
     Dosage: 30 MG
     Route: 037
  9. METHYLPREDNISOLONE. [Concomitant]
     Active Substance: METHYLPREDNISOLONE
     Indication: PRECURSOR T-LYMPHOBLASTIC LYMPHOMA/LEUKAEMIA
     Dosage: 3 MG
     Route: 037
  10. METHOTREXATE. [Interacting]
     Active Substance: METHOTREXATE
     Indication: T-CELL LYMPHOMA
     Dosage: 12 MG
     Route: 037
  11. 6-MERCAPTOPURINE MONOHYDRATE [Concomitant]
     Active Substance: MERCAPTOPURINE
     Indication: PRECURSOR T-LYMPHOBLASTIC LYMPHOMA/LEUKAEMIA
     Dosage: 775 MG/M2 OF THE INTENDED TOTAL OF 1400 MG/M2, DAILY
     Route: 048

REACTIONS (5)
  - Photosensitivity reaction [Recovered/Resolved]
  - Sunburn [Recovered/Resolved]
  - Nephropathy toxic [Unknown]
  - Cheilitis [Recovered/Resolved]
  - Drug interaction [Unknown]
